FAERS Safety Report 23977966 (Version 1)
Quarter: 2024Q2

REPORT INFORMATION
  Report Type: Spontaneous
  Country: US (occurrence: None)
  Receive Date: 20240614
  Receipt Date: 20240614
  Transmission Date: 20240716
  Serious: Yes (Hospitalization)
  Sender: FDA-Public Use
  Company Number: None

PATIENT
  Sex: Female

DRUGS (1)
  1. PROLIA [Suspect]
     Active Substance: DENOSUMAB
     Indication: Senile osteoporosis
     Dosage: 60MG  EVERY 6 MONTHS UNDER THE SKIN?
     Route: 058
     Dates: start: 20231220

REACTIONS (2)
  - Pneumonia [None]
  - Pulmonary thrombosis [None]
